FAERS Safety Report 10396907 (Version 1)
Quarter: 2014Q3

REPORT INFORMATION
  Report Type: Spontaneous
  Country: AR (occurrence: AR)
  Receive Date: 20140820
  Receipt Date: 20140820
  Transmission Date: 20150326
  Serious: Yes (Other)
  Sender: FDA-Public Use
  Company Number: PHHY2014AR103647

PATIENT
  Sex: Female

DRUGS (1)
  1. TEGRETOL [Suspect]
     Active Substance: CARBAMAZEPINE
     Indication: INFANTILE SPASMS
     Dosage: 4.5 DF, PER DAY
     Route: 048
     Dates: start: 1991

REACTIONS (2)
  - Nervous system disorder [Unknown]
  - Convulsion [Not Recovered/Not Resolved]
